FAERS Safety Report 13535962 (Version 1)
Quarter: 2017Q2

REPORT INFORMATION
  Report Type: Spontaneous
  Country: US (occurrence: US)
  Receive Date: 20170511
  Receipt Date: 20170511
  Transmission Date: 20170830
  Serious: Yes (Hospitalization)
  Sender: FDA-Public Use
  Company Number: PHHY2017US064461

PATIENT
  Age: 72 Year
  Sex: Female

DRUGS (2)
  1. METFORMIN [Suspect]
     Active Substance: METFORMIN HYDROCHLORIDE
     Indication: TYPE 2 DIABETES MELLITUS
     Route: 065
  2. INSULIN [Concomitant]
     Active Substance: INSULIN NOS
     Indication: TYPE 2 DIABETES MELLITUS
     Route: 065

REACTIONS (6)
  - Dyspnoea [Unknown]
  - Myocardial infarction [Recovering/Resolving]
  - Lactic acidosis [Unknown]
  - Hypoperfusion [Unknown]
  - Nephropathy [Recovered/Resolved]
  - Multiple organ dysfunction syndrome [Unknown]
